FAERS Safety Report 25460839 (Version 1)
Quarter: 2025Q2

REPORT INFORMATION
  Report Type: Report from Study
  Country: CN (occurrence: CN)
  Receive Date: 20250620
  Receipt Date: 20250620
  Transmission Date: 20250716
  Serious: Yes (Hospitalization)
  Sender: PFIZER
  Company Number: CN-PFIZER INC-202500124108

PATIENT

DRUGS (2)
  1. AXITINIB [Suspect]
     Active Substance: AXITINIB
     Indication: Clear cell renal cell carcinoma
     Dosage: 5 MG, 2X/DAY
     Route: 048
  2. TISLELIZUMAB [Suspect]
     Active Substance: TISLELIZUMAB
     Indication: Clear cell renal cell carcinoma
     Dosage: 200 MG, EVERY 3 WEEKS
     Route: 042

REACTIONS (3)
  - Thrombocytopenia [Recovering/Resolving]
  - Disseminated intravascular coagulation [Recovering/Resolving]
  - Hepatic function abnormal [Recovering/Resolving]
